FAERS Safety Report 13270603 (Version 1)
Quarter: 2017Q1

REPORT INFORMATION
  Report Type: Not Available
  Country: US (occurrence: US)
  Receive Date: 20170224
  Receipt Date: 20170224
  Transmission Date: 20170428
  Serious: Yes (Other)
  Sender: FDA-Public Use
  Company Number: US-ANIPHARMA-2017-US-001960

PATIENT
  Age: 68 Year
  Sex: Male
  Weight: 86.18 kg

DRUGS (1)
  1. REGLAN [Suspect]
     Active Substance: METOCLOPRAMIDE HYDROCHLORIDE
     Route: 048

REACTIONS (9)
  - Tardive dyskinesia [Unknown]
  - Altered state of consciousness [Unknown]
  - Vomiting [Unknown]
  - Pneumonia [Unknown]
  - Dysphagia [Unknown]
  - Akathisia [Unknown]
  - Hallucination [Unknown]
  - Parkinsonism [Unknown]
  - Dystonia [Unknown]
